FAERS Safety Report 25710952 (Version 2)
Quarter: 2025Q3

REPORT INFORMATION
  Report Type: Spontaneous
  Country: US (occurrence: US)
  Receive Date: 20250821
  Receipt Date: 20250827
  Transmission Date: 20251021
  Serious: No
  Sender: SANOFI AVENTIS
  Company Number: US-SANOFI-02625677

PATIENT

DRUGS (1)
  1. LANTUS [Suspect]
     Active Substance: INSULIN GLARGINE
     Indication: Diabetes mellitus
     Dosage: 36 UNITS AND DEPENDING ON THE GLUCOSE LEVEL ADD ONE UNIT QD
     Route: 065

REACTIONS (1)
  - Incorrect dose administered [Unknown]
